FAERS Safety Report 11075134 (Version 1)
Quarter: 2015Q2

REPORT INFORMATION
  Report Type: Spontaneous
  Country: US (occurrence: None)
  Receive Date: 20150428
  Receipt Date: 20150428
  Transmission Date: 20150821
  Serious: No
  Sender: FDA-Public Use
  Company Number: None

PATIENT
  Age: 38 Year
  Sex: Female
  Weight: 68.95 kg

DRUGS (3)
  1. MALARONE GENERIC - ATOVAGUONE-PROGUANIL [Concomitant]
  2. ANTI-MALARIAL MEDS [Concomitant]
  3. ACETAZOLAMIDE. [Suspect]
     Active Substance: ACETAZOLAMIDE
     Indication: MOUNTAIN SICKNESS ACUTE
     Dosage: 1 PILL
     Route: 048
     Dates: start: 20150414, end: 20150416

REACTIONS (2)
  - Hypoaesthesia [None]
  - Paraesthesia [None]

NARRATIVE: CASE EVENT DATE: 20150416
